FAERS Safety Report 7111914-6 (Version None)
Quarter: 2010Q4

REPORT INFORMATION
  Report Type: 
  Country: None (occurrence: None)
  Receive Date: 20101119
  Receipt Date: 20101110
  Transmission Date: 20110411
  Serious: No
  Sender: FDA-Public Use
  Company Number: US-BIOGENIDEC-2010BI040097

PATIENT
  Sex: Female

DRUGS (4)
  1. TYSABRI [Suspect]
     Indication: MULTIPLE SCLEROSIS
     Route: 042
     Dates: start: 20080522
  2. AVONEX [Concomitant]
     Indication: MULTIPLE SCLEROSIS
     Route: 030
  3. COPAXONE [Concomitant]
     Indication: MULTIPLE SCLEROSIS
  4. REBIF [Concomitant]
     Indication: MULTIPLE SCLEROSIS

REACTIONS (1)
  - DRUG EFFECT DECREASED [None]
